FAERS Safety Report 11520834 (Version 10)
Quarter: 2016Q4

REPORT INFORMATION
  Report Type: Report from Study
  Country: US (occurrence: US)
  Receive Date: 20150918
  Receipt Date: 20161027
  Transmission Date: 20170206
  Serious: Yes (Life-Threatening, Other)
  Sender: FDA-Public Use
  Company Number: PHEH2015US017643

PATIENT
  Age: 68 Year
  Sex: Female
  Weight: 79.37 kg

DRUGS (3)
  1. GILENYA [Suspect]
     Active Substance: FINGOLIMOD HYDROCHLORIDE
     Indication: MULTIPLE SCLEROSIS
     Dosage: 0.5 MG, QD
     Route: 048
     Dates: start: 20150514
  2. GILENYA [Suspect]
     Active Substance: FINGOLIMOD HYDROCHLORIDE
     Dosage: 0.5 MG, QD
     Route: 048
     Dates: end: 201602
  3. GILENYA [Suspect]
     Active Substance: FINGOLIMOD HYDROCHLORIDE
     Dosage: 0.5 MG, QD
     Route: 048
     Dates: start: 20160606

REACTIONS (27)
  - Weight increased [Unknown]
  - Hypersomnia [Unknown]
  - Confusional state [Unknown]
  - Malaise [Not Recovered/Not Resolved]
  - Peripheral swelling [Unknown]
  - Fluid retention [Unknown]
  - Dysgraphia [Unknown]
  - Nervousness [Unknown]
  - Back pain [Unknown]
  - Renal failure [Unknown]
  - Peripheral arthritis [Unknown]
  - Depressed mood [Unknown]
  - Influenza [Not Recovered/Not Resolved]
  - Insomnia [Unknown]
  - Liver disorder [Not Recovered/Not Resolved]
  - Fatigue [Unknown]
  - Liver injury [Unknown]
  - Fluid overload [Unknown]
  - Hepatic enzyme abnormal [Unknown]
  - Cerebral disorder [Unknown]
  - Lung disorder [Unknown]
  - Feeling abnormal [Not Recovered/Not Resolved]
  - Psychiatric symptom [Unknown]
  - Hepatic function abnormal [Unknown]
  - Cardiac failure congestive [Unknown]
  - Condition aggravated [Unknown]
  - Musculoskeletal discomfort [Unknown]

NARRATIVE: CASE EVENT DATE: 20160621
